FAERS Safety Report 12357116 (Version 8)
Quarter: 2020Q1

REPORT INFORMATION
  Report Type: Spontaneous
  Country: FR (occurrence: FR)
  Receive Date: 20160511
  Receipt Date: 20200205
  Transmission Date: 20200409
  Serious: Yes (Hospitalization, Disabling, Congenital Anomaly, Other)
  Sender: FDA-Public Use
  Company Number: FR-LUNDBECK-DKLU2013615

PATIENT
  Age: 1 Day
  Sex: Male
  Weight: 3 kg

DRUGS (5)
  1. URBANYL [Suspect]
     Active Substance: CLOBAZAM
     Indication: PRODUCT USED FOR UNKNOWN INDICATION
     Route: 064
     Dates: start: 20140622, end: 20150302
  2. ZONISAMIDE. [Suspect]
     Active Substance: ZONISAMIDE
     Indication: PRODUCT USED FOR UNKNOWN INDICATION
     Route: 064
     Dates: start: 20140622, end: 20150302
  3. ASPEGIC [Concomitant]
     Indication: PRODUCT USED FOR UNKNOWN INDICATION
     Route: 064
  4. LEVETIRACETAM. [Suspect]
     Active Substance: LEVETIRACETAM
     Indication: PRODUCT USED FOR UNKNOWN INDICATION
     Route: 064
     Dates: start: 20140622, end: 20150302
  5. FOLIC ACID. [Concomitant]
     Active Substance: FOLIC ACID
     Indication: PRODUCT USED FOR UNKNOWN INDICATION
     Route: 064

REACTIONS (39)
  - Autism spectrum disorder [Unknown]
  - Behaviour disorder [Unknown]
  - Craniofacial deformity [Unknown]
  - Cafe au lait spots [Unknown]
  - Dysmorphism [Unknown]
  - Lip disorder [Unknown]
  - Eating disorder [Not Recovered/Not Resolved]
  - Mood swings [Unknown]
  - Cerebral disorder [Not Recovered/Not Resolved]
  - Nasopharyngitis [Unknown]
  - Mental disorder [Unknown]
  - Congenital cutis laxa [Not Recovered/Not Resolved]
  - Nose deformity [Unknown]
  - Communication disorder [Unknown]
  - Stereotypy [Unknown]
  - Hypotonia [Not Recovered/Not Resolved]
  - Speech disorder developmental [Unknown]
  - Aggression [Unknown]
  - Language disorder [Unknown]
  - Foetal exposure during pregnancy [Unknown]
  - Foot deformity [Unknown]
  - Dysmorphism [Unknown]
  - Cytogenetic abnormality [Not Recovered/Not Resolved]
  - Hydrocephalus [Unknown]
  - Tremor [Unknown]
  - Aggression [Unknown]
  - Weight decreased [Unknown]
  - Hypermobility syndrome [Unknown]
  - Sleep disorder [Unknown]
  - Deafness bilateral [Unknown]
  - Plagiocephaly [Unknown]
  - Autism spectrum disorder [Unknown]
  - Macrocephaly [Unknown]
  - Motor developmental delay [Unknown]
  - Ear infection [Unknown]
  - Epilepsy [Unknown]
  - Asthma [Unknown]
  - Hypertelorism of orbit [Unknown]
  - Low set ears [Not Recovered/Not Resolved]

NARRATIVE: CASE EVENT DATE: 2014
